FAERS Safety Report 9456597 (Version 1)
Quarter: 2013Q3

REPORT INFORMATION
  Report Type: Report from Study
  Country: US (occurrence: US)
  Receive Date: 20130813
  Receipt Date: 20130813
  Transmission Date: 20140515
  Serious: Yes (Hospitalization)
  Sender: FDA-Public Use
  Company Number: US-BAYER-2013-033430

PATIENT
  Age: 50 Year
  Sex: Female

DRUGS (3)
  1. BETASERON [Suspect]
     Indication: RELAPSING-REMITTING MULTIPLE SCLEROSIS
     Dosage: 8 MIU, QOD
     Route: 058
     Dates: start: 20081008
  2. ALEVE TABLET [Suspect]
  3. TYLENOL [PARACETAMOL] [Concomitant]
     Indication: PREMEDICATION

REACTIONS (3)
  - Ulcer haemorrhage [Recovered/Resolved]
  - Thyroid function test abnormal [Not Recovered/Not Resolved]
  - Alopecia [Not Recovered/Not Resolved]
